FAERS Safety Report 6025367-2 (Version None)
Quarter: 2008Q4

REPORT INFORMATION
  Report Type: 
  Country: None (occurrence: None)
  Receive Date: 20081231
  Receipt Date: 20081226
  Transmission Date: 20090506
  Serious: Yes (Death, Other)
  Sender: FDA-Public Use
  Company Number: JP-MERCK-0812USA04362

PATIENT
  Age: 54 Year
  Sex: Male
  Weight: 63 kg

DRUGS (10)
  1. STROMECTOL [Suspect]
     Indication: ACARODERMATITIS
     Route: 048
     Dates: start: 20081212, end: 20081212
  2. ALLELOCK [Concomitant]
     Indication: PRURITUS
     Route: 048
  3. URSO 250 [Concomitant]
     Route: 048
     Dates: start: 20081118
  4. LASIX [Concomitant]
     Indication: ASCITES
     Route: 048
     Dates: start: 20081107
  5. AMINOLEBAN [Concomitant]
     Route: 048
  6. LASIX [Concomitant]
     Indication: ASCITES
     Route: 051
     Dates: start: 20081211
  7. TATHION [Concomitant]
     Route: 051
     Dates: start: 20081211
  8. NEOLAMIN 3B INTRAVENOUS [Concomitant]
     Route: 042
     Dates: start: 20081211
  9. ASCORBIC ACID [Concomitant]
     Route: 051
  10. EURAX [Concomitant]
     Route: 061
     Dates: start: 20081212

REACTIONS (14)
  - BLOOD PRESSURE DECREASED [None]
  - CARDIO-RESPIRATORY ARREST [None]
  - EOSINOPHIL COUNT INCREASED [None]
  - FALL [None]
  - FATIGUE [None]
  - HEPATIC FAILURE [None]
  - HYPERAMMONAEMIA [None]
  - NAUSEA [None]
  - NEUROLOGICAL SYMPTOM [None]
  - PRURITUS [None]
  - PYREXIA [None]
  - SOMNOLENCE [None]
  - URINARY INCONTINENCE [None]
  - VOMITING [None]
